FAERS Safety Report 6020609-1 (Version None)
Quarter: 2008Q4

REPORT INFORMATION
  Report Type: 
  Country: None (occurrence: None)
  Receive Date: 20081227
  Receipt Date: 20081212
  Transmission Date: 20090506
  Serious: Yes (Hospitalization)
  Sender: FDA-Public Use
  Company Number: FR-SANOFI-SYNTHELABO-A02200803729

PATIENT
  Sex: Female

DRUGS (7)
  1. EZETROL [Concomitant]
     Indication: DYSLIPIDAEMIA
     Route: 048
     Dates: start: 20080101
  2. KARDEGIC [Concomitant]
     Indication: ARRHYTHMIA
     Route: 048
  3. INIPOMP [Concomitant]
     Indication: OESOPHAGITIS
     Route: 048
  4. SOTALEX [Concomitant]
     Indication: HYPERTENSION
     Route: 048
  5. SEROPLEX [Concomitant]
     Indication: DEPRESSION
     Route: 048
     Dates: start: 20081015
  6. ALDACTAZINE [Suspect]
     Indication: HYPERTENSION
     Route: 048
     Dates: end: 20081022
  7. STILNOX [Suspect]
     Indication: INSOMNIA
     Route: 048
     Dates: end: 20081022

REACTIONS (4)
  - HYPOKALAEMIA [None]
  - HYPONATRAEMIA [None]
  - MALAISE [None]
  - ORTHOSTATIC HYPOTENSION [None]
